FAERS Safety Report 15600189 (Version 1)
Quarter: 2018Q4

REPORT INFORMATION
  Report Type: Spontaneous
  Country: US (occurrence: US)
  Receive Date: 20181109
  Receipt Date: 20181109
  Transmission Date: 20190205
  Serious: Yes (Death, Hospitalization)
  Sender: FDA-Public Use
  Company Number: US-ABBVIE-18S-163-2548169-00

PATIENT
  Age: 84 Year
  Sex: Male
  Weight: 88.53 kg

DRUGS (4)
  1. DEPAKOTE [Suspect]
     Active Substance: DIVALPROEX SODIUM
     Indication: RESTLESSNESS
     Route: 048
     Dates: start: 201806, end: 20181005
  2. DEPAKOTE [Suspect]
     Active Substance: DIVALPROEX SODIUM
     Route: 048
     Dates: start: 20181005, end: 201810
  3. ARICEPT [Concomitant]
     Active Substance: DONEPEZIL HYDROCHLORIDE
     Indication: PRODUCT USED FOR UNKNOWN INDICATION
  4. DEPAKOTE [Suspect]
     Active Substance: DIVALPROEX SODIUM
     Indication: AGITATION
     Route: 048
     Dates: start: 201712, end: 201806

REACTIONS (8)
  - Lethargy [Unknown]
  - Hallucination [Unknown]
  - Dehydration [Fatal]
  - Skin disorder [Unknown]
  - Dementia [Fatal]
  - Thrombosis [Fatal]
  - Diarrhoea [Fatal]
  - Arterial occlusive disease [Fatal]

NARRATIVE: CASE EVENT DATE: 201810
